FAERS Safety Report 17748211 (Version 3)
Quarter: 2020Q2

REPORT INFORMATION
  Report Type: Spontaneous
  Country: US (occurrence: US)
  Receive Date: 20200506
  Receipt Date: 20200529
  Transmission Date: 20200714
  Serious: No
  Sender: FDA-Public Use
  Company Number: US-AMGEN-USASP2020072927

PATIENT
  Age: 68 Year
  Sex: Female
  Weight: 103.4 kg

DRUGS (1)
  1. AIMOVIG [Suspect]
     Active Substance: ERENUMAB-AOOE
     Indication: MIGRAINE
     Dosage: 70 MILLIGRAM, QMO
     Route: 030
     Dates: start: 2019

REACTIONS (5)
  - Device issue [Unknown]
  - Incorrect route of product administration [Unknown]
  - Injection site pain [Not Recovered/Not Resolved]
  - Incorrect dose administered by device [Unknown]
  - Therapeutic response shortened [Unknown]

NARRATIVE: CASE EVENT DATE: 2019
